FAERS Safety Report 5222953-4 (Version None)
Quarter: 2007Q1

REPORT INFORMATION
  Report Type: 
  Country: None (occurrence: None)
  Receive Date: 20061208
  Receipt Date: 20060327
  Transmission Date: 20070707
  Serious: Yes (Other)
  Sender: FDA-Public Use
  Company Number: 2006042921

PATIENT
  Age: 58 Year
  Sex: Male
  Weight: 90.7194 kg

DRUGS (7)
  1. VIAGRA [Suspect]
     Indication: ERECTILE DYSFUNCTION
     Dosage: (50 MG, 1 WK)
     Dates: start: 20050101
  2. METFORMIN HCL [Concomitant]
  3. ANTI-DIABETICS (ANTI-DIABETICS) [Concomitant]
  4. LISINOPRIL [Concomitant]
  5. VERAPAMIL [Concomitant]
  6. MULTIVITAMIN [Concomitant]
  7. FISH OIL (FISH OIL) [Concomitant]

REACTIONS (3)
  - CATARACT [None]
  - DIABETES MELLITUS [None]
  - TINNITUS [None]
